FAERS Safety Report 18144532 (Version 2)
Quarter: 2020Q3

REPORT INFORMATION
  Report Type: Report from Study
  Country: US (occurrence: US)
  Receive Date: 20200813
  Receipt Date: 20200917
  Transmission Date: 20201103
  Serious: Yes (Other)
  Sender: FDA-Public Use
  Company Number: NVSC2020US217278

PATIENT
  Sex: Female

DRUGS (1)
  1. COSENTYX [Suspect]
     Active Substance: SECUKINUMAB
     Indication: JUVENILE IDIOPATHIC ARTHRITIS
     Dosage: 150 MG, QW (INJECT 150MG SUBCUTANEOUSLY EVERY WEEK FOR 5 WEEKS, THEN INJECT 150MG SUBCUATENOUSLY EVE
     Route: 058
     Dates: start: 202004

REACTIONS (2)
  - Drug ineffective for unapproved indication [Unknown]
  - Juvenile idiopathic arthritis [Unknown]
